FAERS Safety Report 4636647-7 (Version None)
Quarter: 2005Q2

REPORT INFORMATION
  Report Type: 
  Country: None (occurrence: None)
  Receive Date: 20050328
  Receipt Date: 20041208
  Transmission Date: 20051028
  Serious: No
  Sender: FDA-Public Use
  Company Number: USA041285683

PATIENT
  Age: 37 Year
  Sex: Female

DRUGS (2)
  1. STRATTERA [Suspect]
     Indication: ATTENTION DEFICIT/HYPERACTIVITY DISORDER
     Dates: start: 20041206
  2. Z-PAK (AZITHROMYCIN) [Concomitant]

REACTIONS (4)
  - ABNORMAL DREAMS [None]
  - CRYING [None]
  - DIARRHOEA [None]
  - MOOD SWINGS [None]
